FAERS Safety Report 24276638 (Version 1)
Quarter: 2024Q3

REPORT INFORMATION
  Report Type: Spontaneous
  Country: CN (occurrence: CN)
  Receive Date: 20240903
  Receipt Date: 20240903
  Transmission Date: 20241016
  Serious: Yes (Hospitalization)
  Sender: ACCORD
  Company Number: None

PATIENT
  Age: 55 Year
  Sex: Female

DRUGS (4)
  1. PACLITAXEL [Suspect]
     Active Substance: PACLITAXEL
     Indication: Invasive ductal breast carcinoma
     Dosage: 200 MILLIGRAM, QD
     Route: 042
     Dates: start: 20240809, end: 20240809
  2. TRASTUZUMAB [Suspect]
     Active Substance: TRASTUZUMAB
     Indication: Invasive ductal breast carcinoma
     Dosage: 330 MILLIGRAM, QD
     Route: 042
     Dates: start: 20240809, end: 20240809
  3. CARBOPLATIN [Suspect]
     Active Substance: CARBOPLATIN
     Indication: Invasive ductal breast carcinoma
     Dosage: 570 MILLIGRAM, QD
     Route: 042
     Dates: start: 20240809, end: 20240809
  4. PYROTINIB [Suspect]
     Active Substance: PYROTINIB
     Indication: Invasive ductal breast carcinoma
     Dosage: 320 MILLIGRAM, QD
     Route: 048
     Dates: start: 20240809, end: 20240815

REACTIONS (2)
  - Granulocyte count decreased [Recovered/Resolved]
  - White blood cell count decreased [Recovered/Resolved]

NARRATIVE: CASE EVENT DATE: 20240815
